FAERS Safety Report 9696317 (Version 1)
Quarter: 2013Q4

REPORT INFORMATION
  Report Type: Spontaneous
  Country: US (occurrence: US)
  Receive Date: 20131119
  Receipt Date: 20131119
  Transmission Date: 20140711
  Serious: No
  Sender: FDA-Public Use
  Company Number: US-B.I. PHARMACEUTICALS,INC./RIDGEFIELD-2013-BI-36461BP

PATIENT
  Age: 79 Year
  Sex: Female

DRUGS (4)
  1. SPIRIVA [Suspect]
     Indication: CHRONIC OBSTRUCTIVE PULMONARY DISEASE
     Dosage: 18 MCG
     Route: 055
     Dates: start: 201309
  2. PREDNISONE [Suspect]
  3. THYROID [Concomitant]
     Indication: HYPOTHYROIDISM
  4. DIOVAN [Concomitant]
     Indication: HYPERTENSION

REACTIONS (1)
  - Alopecia [Not Recovered/Not Resolved]
